FAERS Safety Report 7792909-6 (Version None)
Quarter: 2011Q4

REPORT INFORMATION
  Report Type: 
  Country: None (occurrence: None)
  Receive Date: 20111003
  Receipt Date: 20110920
  Transmission Date: 20120403
  Serious: Yes (Other)
  Sender: FDA-Public Use
  Company Number: PHHY2011US84882

PATIENT
  Age: 52 Year
  Sex: Male

DRUGS (1)
  1. IMATINIB MESYLATE [Suspect]
     Indication: CHRONIC MYELOID LEUKAEMIA
     Dosage: UNK

REACTIONS (8)
  - CHRONIC GRAFT VERSUS HOST DISEASE [None]
  - SCLERODERMA [None]
  - LICHEN PLANUS [None]
  - ARTHROPATHY [None]
  - SKIN TIGHTNESS [None]
  - SKIN HYPERTROPHY [None]
  - SKIN HYPERPIGMENTATION [None]
  - SKIN FIBROSIS [None]
